FAERS Safety Report 6716595-9 (Version None)
Quarter: 2010Q2

REPORT INFORMATION
  Report Type: 
  Country: None (occurrence: None)
  Receive Date: 20100507
  Receipt Date: 20100427
  Transmission Date: 20101027
  Serious: Yes (Other)
  Sender: FDA-Public Use
  Company Number: US-ABBOTT-10P-163-0640774-00

PATIENT
  Sex: Male

DRUGS (12)
  1. SYNTHROID [Suspect]
     Indication: HYPOTHYROIDISM
     Dates: start: 20090201
  2. SYNTHROID [Suspect]
     Dosage: 8 MIU
     Route: 058
  3. SYNTHROID [Suspect]
     Dosage: 6 MIU
     Route: 058
  4. SYNTHROID [Suspect]
     Dosage: 4 MIU
     Route: 058
     Dates: end: 20070920
  5. SYNTHROID [Suspect]
     Dosage: 2 MIU
     Route: 058
     Dates: start: 20070618
  6. BETASERON [Suspect]
     Indication: MULTIPLE SCLEROSIS
     Dosage: 2 MIU
     Route: 058
     Dates: start: 20070618
  7. BETASERON [Suspect]
     Dosage: 4 MIU
     Route: 058
     Dates: end: 20070920
  8. BETASERON [Suspect]
     Dosage: 6 MIU
     Route: 058
  9. BETASERON [Suspect]
     Dosage: 8 MIU
     Route: 058
  10. BETASERON [Suspect]
     Dosage: 8 MIU
     Route: 058
     Dates: start: 20071001
  11. OMEGA FISH OIL [Concomitant]
     Indication: DRUG USE FOR UNKNOWN INDICATION
  12. SUDAFED 12 HOUR [Concomitant]
     Indication: DRUG USE FOR UNKNOWN INDICATION

REACTIONS (15)
  - ANXIETY [None]
  - BLOOD THYROID STIMULATING HORMONE INCREASED [None]
  - CONVULSION [None]
  - DIZZINESS [None]
  - FEELING ABNORMAL [None]
  - FEELING HOT [None]
  - HEAD INJURY [None]
  - INSOMNIA [None]
  - MENTAL DISORDER [None]
  - MULTIPLE SCLEROSIS RELAPSE [None]
  - PALPITATIONS [None]
  - SKIN LACERATION [None]
  - SYNCOPE [None]
  - THYROID DISORDER [None]
  - THYROID NEOPLASM [None]
